FAERS Safety Report 20778572 (Version 1)
Quarter: 2022Q2

REPORT INFORMATION
  Report Type: 
  Country: None (occurrence: None)
  Receive Date: 20220503
  Receipt Date: 20220503
  Transmission Date: 20220721
  Serious: No
  Sender: FDA-Public Use
  Company Number: None

PATIENT
  Age: 75 Year
  Sex: Female

DRUGS (1)
  1. ZIOPTAN [Suspect]
     Active Substance: TAFLUPROST

REACTIONS (9)
  - Vision blurred [Recovered/Resolved]
  - Visual impairment [Recovered/Resolved]
  - Eye pain [Recovered/Resolved]
  - Ear pain [Recovered/Resolved]
  - Dysphonia [Recovered/Resolved]
  - Dysphagia [Recovered/Resolved]
  - Headache [Recovered/Resolved]
  - Palpitations [Recovered/Resolved]
  - Eye inflammation [Recovered/Resolved]

NARRATIVE: CASE EVENT DATE: 20220404
